FAERS Safety Report 11822280 (Version 1)
Quarter: 2015Q4

REPORT INFORMATION
  Report Type: Report from Study
  Country: US (occurrence: US)
  Receive Date: 20151210
  Receipt Date: 20151210
  Transmission Date: 20160305
  Serious: Yes (Death)
  Sender: FDA-Public Use
  Company Number: US-ROCHE-1674314

PATIENT
  Age: 61 Year
  Sex: Male
  Weight: 125.2 kg

DRUGS (13)
  1. CALCITRIOL. [Concomitant]
     Active Substance: CALCITRIOL
     Route: 065
  2. DIAZEPAM. [Concomitant]
     Active Substance: DIAZEPAM
     Indication: ANXIETY
     Dosage: AS REQUIRED
     Route: 048
  3. HYDRALAZINE [Concomitant]
     Active Substance: HYDRALAZINE HYDROCHLORIDE
     Route: 048
  4. CALCIUM CARBONATE. [Concomitant]
     Active Substance: CALCIUM CARBONATE
     Route: 065
  5. VEMURAFENIB [Suspect]
     Active Substance: VEMURAFENIB
     Indication: THYROID CANCER
     Dosage: STRENGTH 240 MG
     Route: 048
     Dates: start: 20150910, end: 20151118
  6. CHLORTHALIDONE. [Concomitant]
     Active Substance: CHLORTHALIDONE
     Route: 048
  7. IBUPROFEN. [Concomitant]
     Active Substance: IBUPROFEN
     Route: 065
  8. SYNTHROID [Concomitant]
     Active Substance: LEVOTHYROXINE SODIUM
     Route: 065
  9. LOSARTAN. [Concomitant]
     Active Substance: LOSARTAN
     Route: 048
  10. OXYCODONE [Concomitant]
     Active Substance: OXYCODONE
     Dosage: 10/325MG AS NEEDED
     Route: 065
  11. VITAMIN D3 [Concomitant]
     Active Substance: CHOLECALCIFEROL
     Route: 065
  12. DILTIAZEM [Concomitant]
     Active Substance: DILTIAZEM
     Route: 048
  13. ALBUTEROL. [Concomitant]
     Active Substance: ALBUTEROL
     Route: 065

REACTIONS (1)
  - Tracheal fistula [Fatal]

NARRATIVE: CASE EVENT DATE: 20151204
